FAERS Safety Report 8903739 (Version 1)
Quarter: 2012Q4

REPORT INFORMATION
  Report Type: 
  Country: US (occurrence: US)
  Receive Date: 20121113
  Receipt Date: 20121113
  Transmission Date: 20130627
  Serious: No
  Sender: FDA-Public Use
  Company Number: US-AMGEN-USASP2012009821

PATIENT
  Age: 34 Year
  Sex: Male
  Weight: 102.4 kg

DRUGS (3)
  1. ENBREL [Suspect]
     Indication: PRODUCT USED FOR UNKNOWN INDICATION
     Dosage: 50 mg, 2 times/wk
     Route: 058
  2. ADVIL PM                           /06117501/ [Concomitant]
     Dosage: 25 mg, UNK
  3. ZERIT [Concomitant]
     Dosage: UNK

REACTIONS (1)
  - Malaise [Unknown]
